FAERS Safety Report 9350746 (Version 2)
Quarter: 2013Q3

REPORT INFORMATION
  Report Type: Spontaneous
  Country: SE (occurrence: SE)
  Receive Date: 20130617
  Receipt Date: 20130815
  Transmission Date: 20140515
  Serious: Yes (Other)
  Sender: FDA-Public Use
  Company Number: PHHY2013SE061089

PATIENT
  Sex: 0

DRUGS (2)
  1. RITALIN [Suspect]
     Indication: ATTENTION DEFICIT/HYPERACTIVITY DISORDER
     Dosage: 10 MG, UNK
     Dates: start: 2011
  2. CONCERTA [Suspect]
     Dosage: 26 MG IN THE MORNING AND 18 MG IN THE EVENING

REACTIONS (2)
  - Gastritis [Unknown]
  - Gastric disorder [Unknown]
